FAERS Safety Report 9854476 (Version 2)
Quarter: 2014Q1

REPORT INFORMATION
  Report Type: Spontaneous
  Country: US (occurrence: US)
  Receive Date: 20140130
  Receipt Date: 20140326
  Transmission Date: 20141002
  Serious: No
  Sender: FDA-Public Use
  Company Number: US-BIOGENIDEC-2014BI006802

PATIENT
  Sex: Male

DRUGS (10)
  1. TECFIDERA [Suspect]
     Indication: MULTIPLE SCLEROSIS
     Route: 048
     Dates: start: 20140109
  2. AMANTADINE HCL [Concomitant]
  3. L-THYROXINE SODIUM [Concomitant]
  4. TERAZOSIN HCL [Concomitant]
  5. TIZANIDINE HCL [Concomitant]
  6. VITAMIN D3 [Concomitant]
  7. ASPIRIN ADULT LOW STRENGTH [Concomitant]
  8. CENTRUM CARDIO [Concomitant]
  9. LEVOTHYROXINE SODIUM [Concomitant]
  10. TAMIFLU [Concomitant]

REACTIONS (3)
  - Paraesthesia [Unknown]
  - Weight increased [Not Recovered/Not Resolved]
  - Flushing [Not Recovered/Not Resolved]
